FAERS Safety Report 5022855-2 (Version None)
Quarter: 2006Q2

REPORT INFORMATION
  Report Type: 
  Country: None (occurrence: None)
  Receive Date: 20060426
  Receipt Date: 20060321
  Transmission Date: 20061013
  Serious: Yes (Other)
  Sender: FDA-Public Use
  Company Number: 2006041455

PATIENT
  Age: 82 Year
  Sex: Female
  Weight: 52.1637 kg

DRUGS (3)
  1. LYRICA [Suspect]
     Indication: PAIN
     Dosage: 50 MG (50 MG,1 IN 1 D),ORAL
     Route: 048
     Dates: start: 20060317
  2. ACIPHEX [Concomitant]
  3. ACETAMINOPHEN [Concomitant]

REACTIONS (7)
  - DISTURBANCE IN ATTENTION [None]
  - DIZZINESS [None]
  - DRUG INEFFECTIVE [None]
  - FATIGUE [None]
  - FEELING ABNORMAL [None]
  - HEADACHE [None]
  - VISION BLURRED [None]
